FAERS Safety Report 23920892 (Version 1)
Quarter: 2024Q2

REPORT INFORMATION
  Report Type: Spontaneous
  Country: US (occurrence: None)
  Receive Date: 20240530
  Receipt Date: 20240530
  Transmission Date: 20240715
  Serious: Yes (Hospitalization)
  Sender: FDA-Public Use
  Company Number: None

PATIENT
  Age: 39 Year
  Sex: Female

DRUGS (5)
  1. ADAKVEO [Suspect]
     Active Substance: CRIZANLIZUMAB-TMCA
     Indication: Sickle cell disease
     Dosage: 270 MG EVERY 4 WEEKS IV
     Route: 042
     Dates: start: 202402
  2. DEFEROXAMINE [Concomitant]
     Active Substance: DEFEROXAMINE MESYLATE
  3. STERILE WATER SDV [Concomitant]
  4. EPINEPHRINE [Concomitant]
     Active Substance: EPINEPHRINE
  5. HEPARIN [Concomitant]
     Active Substance: HEPARIN SODIUM

REACTIONS (1)
  - Sickle cell anaemia with crisis [None]

NARRATIVE: CASE EVENT DATE: 20240513
